FAERS Safety Report 13197000 (Version 1)
Quarter: 2017Q1

REPORT INFORMATION
  Report Type: Spontaneous
  Country: US (occurrence: US)
  Receive Date: 20170208
  Receipt Date: 20170208
  Transmission Date: 20170428
  Serious: No
  Sender: FDA-Public Use
  Company Number: US-AMGEN-USASP2016118305

PATIENT

DRUGS (13)
  1. ADRIAMYCIN [Suspect]
     Active Substance: DOXORUBICIN HYDROCHLORIDE
     Indication: OESTROGEN RECEPTOR ASSAY POSITIVE
  2. CYTOXAN [Suspect]
     Active Substance: CYCLOPHOSPHAMIDE
     Indication: OESTROGEN RECEPTOR ASSAY POSITIVE
  3. CYTOXAN [Suspect]
     Active Substance: CYCLOPHOSPHAMIDE
     Indication: PROGESTERONE RECEPTOR ASSAY POSITIVE
  4. CYTOXAN [Suspect]
     Active Substance: CYCLOPHOSPHAMIDE
     Indication: INVASIVE DUCTAL BREAST CARCINOMA
     Dosage: UNK
     Route: 065
  5. HERCEPTIN [Concomitant]
     Active Substance: TRASTUZUMAB
     Indication: INVASIVE DUCTAL BREAST CARCINOMA
     Dosage: UNK
     Dates: start: 20160725
  6. HERCEPTIN [Concomitant]
     Active Substance: TRASTUZUMAB
     Indication: OESTROGEN RECEPTOR ASSAY POSITIVE
  7. ADRIAMYCIN [Suspect]
     Active Substance: DOXORUBICIN HYDROCHLORIDE
     Indication: INVASIVE DUCTAL BREAST CARCINOMA
     Dosage: UNK
     Route: 065
  8. TAXOL [Concomitant]
     Active Substance: PACLITAXEL
     Indication: INVASIVE DUCTAL BREAST CARCINOMA
     Dosage: UNK
     Dates: start: 20160725
  9. NEULASTA [Suspect]
     Active Substance: PEGFILGRASTIM
     Indication: WHITE BLOOD CELL COUNT DECREASED
     Dosage: UNK
     Route: 065
  10. ADRIAMYCIN [Suspect]
     Active Substance: DOXORUBICIN HYDROCHLORIDE
     Indication: PROGESTERONE RECEPTOR ASSAY POSITIVE
  11. TAXOL [Concomitant]
     Active Substance: PACLITAXEL
     Indication: OESTROGEN RECEPTOR ASSAY POSITIVE
  12. TAXOL [Concomitant]
     Active Substance: PACLITAXEL
     Indication: PROGESTERONE RECEPTOR ASSAY POSITIVE
  13. HERCEPTIN [Concomitant]
     Active Substance: TRASTUZUMAB
     Indication: PROGESTERONE RECEPTOR ASSAY POSITIVE

REACTIONS (1)
  - Adverse drug reaction [Unknown]
